FAERS Safety Report 21634129 (Version 9)
Quarter: 2023Q1

REPORT INFORMATION
  Report Type: Report from Study
  Country: IL (occurrence: None)
  Receive Date: 20221123
  Receipt Date: 20230203
  Transmission Date: 20230418
  Serious: Yes (Hospitalization)
  Sender: FDA-Public Use
  Company Number: IL-Eisai Medical Research-EC-2022-128655

PATIENT
  Age: 72 Year
  Sex: Male
  Weight: 95.3 kg

DRUGS (12)
  1. LENVATINIB [Suspect]
     Active Substance: LENVATINIB
     Indication: Malignant melanoma
     Dosage: STARTING DOSE AT 20MG, FLUCTUATED DOSAGE
     Route: 048
     Dates: start: 20210520, end: 20221115
  2. LENVATINIB [Suspect]
     Active Substance: LENVATINIB
     Route: 048
     Dates: start: 20221116, end: 20221116
  3. QUAVONLIMAB [Suspect]
     Active Substance: QUAVONLIMAB
     Indication: Malignant melanoma
     Dosage: (QUAVONLIMAB  (MK-1308) (25 MG) (+) PEMBROLIZUMAB (MK-3475) (400 MG)
     Route: 042
     Dates: start: 20210520, end: 20221027
  4. ALFUZOSIN HYDROCHLORIDE [Concomitant]
     Active Substance: ALFUZOSIN HYDROCHLORIDE
     Dates: start: 2000
  5. ATORVASTATIN [Concomitant]
     Active Substance: ATORVASTATIN
     Dates: start: 2000
  6. RELVAR ELLIPTA [FLUTICASONE FUROATE; VILANETEROL TRIFENATATE] [Concomitant]
     Dates: start: 2000
  7. EZETIMIBE [Concomitant]
     Active Substance: EZETIMIBE
     Dates: start: 2020
  8. CANNABIS SATIVA FLOWERING TOP [Concomitant]
     Active Substance: CANNABIS SATIVA FLOWERING TOP
     Dates: start: 20210609
  9. LEVOTHYROXINE [Concomitant]
     Active Substance: LEVOTHYROXINE
     Dates: start: 20210621
  10. METAMIZOLE [Concomitant]
     Active Substance: METAMIZOLE
     Dates: start: 20210811
  11. CREON [Concomitant]
     Active Substance: PANCRELIPASE AMYLASE\PANCRELIPASE LIPASE\PANCRELIPASE PROTEASE
     Dates: start: 20220911
  12. PEMBROLIZUMAB [Suspect]
     Active Substance: PEMBROLIZUMAB

REACTIONS (1)
  - Cerebrovascular accident [Recovered/Resolved]

NARRATIVE: CASE EVENT DATE: 20221111
